FAERS Safety Report 4947706-3 (Version None)
Quarter: 2006Q1

REPORT INFORMATION
  Report Type: 
  Country: None (occurrence: None)
  Receive Date: 20060320
  Receipt Date: 20060309
  Transmission Date: 20060701
  Serious: Yes (Hospitalization)
  Sender: FDA-Public Use
  Company Number: 2006SE01420

PATIENT
  Age: 84 Year
  Sex: Female

DRUGS (9)
  1. NEXIUM [Suspect]
     Route: 048
     Dates: start: 20060123, end: 20060203
  2. KLACID [Suspect]
     Route: 048
     Dates: start: 20060123, end: 20060203
  3. IMACILLIN [Suspect]
     Route: 048
     Dates: start: 20060123, end: 20060203
  4. MADOPARK TABLET [Concomitant]
     Route: 048
  5. RISPERDAL ORAL LYOPHILISATE [Concomitant]
     Route: 048
  6. ALVEDON [Concomitant]
     Route: 048
  7. SALURES [Concomitant]
     Route: 048
  8. KALITABS [Concomitant]
     Route: 048
  9. DEXOFEN [Concomitant]
     Route: 048

REACTIONS (1)
  - VASCULITIS [None]
